FAERS Safety Report 16732176 (Version 2)
Quarter: 2019Q3

REPORT INFORMATION
  Report Type: Spontaneous
  Country: GB (occurrence: GB)
  Receive Date: 20190822
  Receipt Date: 20190902
  Transmission Date: 20191005
  Serious: Yes (Death, Hospitalization)
  Sender: FDA-Public Use
  Company Number: GB-B.I. PHARMACEUTICALS,INC./RIDGEFIELD-2019-BI-033882

PATIENT
  Age: 65 Year
  Sex: Female
  Weight: 74.4 kg

DRUGS (8)
  1. GILOTRIF [Suspect]
     Active Substance: AFATINIB
     Indication: NON-SMALL CELL LUNG CANCER
  2. HUMULIN M3 [Concomitant]
     Active Substance: INSULIN HUMAN
     Indication: TYPE 2 DIABETES MELLITUS
     Dosage: STARTED PRIOR TO NOV-2018
     Route: 048
  3. OMEPRAZOLE. [Concomitant]
     Active Substance: OMEPRAZOLE
     Indication: GASTROOESOPHAGEAL REFLUX DISEASE
     Dosage: STARTED PRIOR TO NOV-2018
     Route: 048
  4. SIMVASTATIN. [Concomitant]
     Active Substance: SIMVASTATIN
     Indication: HYPERCHOLESTEROLAEMIA
     Dosage: STARTED PRIOR TO NOV-2018
     Route: 048
  5. GILOTRIF [Suspect]
     Active Substance: AFATINIB
     Indication: EGFR GENE MUTATION
     Route: 048
     Dates: start: 20181204, end: 20190810
  6. GLICLAZIDE [Concomitant]
     Active Substance: GLICLAZIDE
     Indication: TYPE 2 DIABETES MELLITUS
     Dosage: STARTED PRIOR TO NOV-2018
     Route: 048
  7. RAMIPRIL. [Concomitant]
     Active Substance: RAMIPRIL
     Indication: HYPERTENSION
     Dosage: STARTED PRIOR TO NOV-2018
     Route: 048
  8. METFORMIN [Concomitant]
     Active Substance: METFORMIN HYDROCHLORIDE
     Indication: TYPE 2 DIABETES MELLITUS
     Dosage: STARTED PRIOR TO NOV-2018
     Route: 048

REACTIONS (6)
  - Metastases to central nervous system [Fatal]
  - Malignant neoplasm progression [Fatal]
  - Intestinal ischaemia [Fatal]
  - Large intestine perforation [Fatal]
  - Diverticulitis [Fatal]
  - Gastrointestinal necrosis [Fatal]

NARRATIVE: CASE EVENT DATE: 20190811
